FAERS Safety Report 9260996 (Version 1)
Quarter: 2013Q1

REPORT INFORMATION
  Report Type: Spontaneous
  Country: US (occurrence: None)
  Receive Date: 20121212
  Receipt Date: 20121212
  Transmission Date: 20140127
  Serious: No
  Sender: FDA-Public Use
  Company Number: 1209USA002911

PATIENT
  Age: 49 Year
  Sex: Female

DRUGS (5)
  1. VICTRELIS [Suspect]
     Indication: HEPATITIS C
     Dates: start: 201207
  2. PEGINTRON [Suspect]
     Dates: start: 201102
  3. RIBASPHERE (RIBAVIRIN) [Concomitant]
  4. LUNESTA (ESZOPICLONE) [Concomitant]
  5. CITALOPRAM (CITALOPRAM) [Concomitant]

REACTIONS (3)
  - Weight decreased [None]
  - Depression [None]
  - Decreased appetite [None]
